FAERS Safety Report 24872825 (Version 2)
Quarter: 2025Q1

REPORT INFORMATION
  Report Type: Spontaneous
  Country: CA (occurrence: CA)
  Receive Date: 20250122
  Receipt Date: 20250128
  Transmission Date: 20250409
  Serious: Yes (Other)
  Sender: Kenvue
  Company Number: CA-KENVUE-20250106529

PATIENT

DRUGS (2)
  1. ACETAMINOPHEN [Suspect]
     Active Substance: ACETAMINOPHEN
     Indication: Product used for unknown indication
     Dosage: 10 DOSAGE FORM, ONCE A DAY
     Route: 045
     Dates: start: 202209, end: 2023
  2. ACETAMINOPHEN [Suspect]
     Active Substance: ACETAMINOPHEN
     Dosage: 1-4 TABLETS DAILY
     Route: 045

REACTIONS (8)
  - Drug abuse [Unknown]
  - Nasal necrosis [Unknown]
  - Nasal septum perforation [Unknown]
  - Odynophagia [Unknown]
  - Oropharyngeal discomfort [Unknown]
  - Vocal cord inflammation [Unknown]
  - Nasal congestion [Unknown]
  - Nasal adhesions [Unknown]

NARRATIVE: CASE EVENT DATE: 20220901
